FAERS Safety Report 9690764 (Version 1)
Quarter: 2013Q4

REPORT INFORMATION
  Report Type: Spontaneous
  Country: CO (occurrence: CO)
  Receive Date: 20131115
  Receipt Date: 20131115
  Transmission Date: 20140711
  Serious: Yes (Hospitalization)
  Sender: FDA-Public Use
  Company Number: CO-PFIZER INC-2013324972

PATIENT
  Age: 54 Year
  Sex: Female

DRUGS (2)
  1. LYRICA [Suspect]
     Indication: MYALGIA
     Dosage: 75 MG, 1X/DAY
     Route: 048
     Dates: start: 201307
  2. EVEROLIMUS [Suspect]
     Indication: TUMOUR INVASION
     Dosage: UNK

REACTIONS (3)
  - Off label use [Not Recovered/Not Resolved]
  - Liver disorder [Not Recovered/Not Resolved]
  - Cholelithiasis [Not Recovered/Not Resolved]
